FAERS Safety Report 20575768 (Version 6)
Quarter: 2024Q4

REPORT INFORMATION
  Report Type: Spontaneous
  Country: US (occurrence: US)
  Receive Date: 20220310
  Receipt Date: 20241007
  Transmission Date: 20250115
  Serious: Yes (Death, Hospitalization, Disabling, Other)
  Sender: ORGANON
  Company Number: US-ORGANON-O2203USA000825

PATIENT
  Sex: Male

DRUGS (10)
  1. SINGULAIR [Suspect]
     Active Substance: MONTELUKAST SODIUM
     Dosage: (DISSOLVE IN MOUTH, FORMULA, OR BREAST MILK)
     Route: 048
     Dates: start: 2003
  2. SINGULAIR [Suspect]
     Active Substance: MONTELUKAST SODIUM
     Dosage: UNK
     Route: 048
  3. SINGULAIR [Suspect]
     Active Substance: MONTELUKAST SODIUM
     Dosage: UNK
     Route: 048
     Dates: end: 2020
  4. BENTYL [Concomitant]
     Active Substance: DICYCLOMINE HYDROCHLORIDE
     Indication: Abdominal pain
     Dosage: 1 TABLET , Q6H
     Route: 048
     Dates: start: 20200222
  5. CLONIDINE [Concomitant]
     Active Substance: CLONIDINE
     Dosage: 1 TABLET , Q4H
     Route: 048
     Dates: start: 20200222
  6. DEPAKOTE [Concomitant]
     Active Substance: DIVALPROEX SODIUM
     Indication: Seizure
     Dosage: 1 TABLET BID
     Route: 048
     Dates: start: 20200221
  7. DOCUSATE;SENNOSIDES NOS [Concomitant]
     Indication: Constipation
     Dosage: 8.6 MILLIGRAM, QD
     Route: 048
  8. EPINEPHRINE [Concomitant]
     Active Substance: EPINEPHRINE
     Dosage: 0.15 MILLIGRAM, ONCE
     Route: 030
     Dates: start: 20200221
  9. FOLIC ACID [Concomitant]
     Active Substance: FOLIC ACID
     Indication: Hypovitaminosis
     Dosage: 1  TABLET QD FOR 7 DAYS
     Dates: start: 20200222, end: 20200228
  10. IBUPROFEN [Concomitant]
     Active Substance: IBUPROFEN
     Dosage: 1 TABLET Q6H
     Route: 048

REACTIONS (14)
  - Neuropsychological symptoms [Fatal]
  - Homicidal ideation [Fatal]
  - Suicidal ideation [Fatal]
  - Asthma [Fatal]
  - Self-destructive behaviour [Unknown]
  - Bipolar II disorder [Unknown]
  - Chronic obstructive pulmonary disease [Unknown]
  - Hypersensitivity [Unknown]
  - Hallucination [Unknown]
  - Food allergy [Unknown]
  - Abnormal behaviour [Unknown]
  - Emotional disorder [Unknown]
  - Depressed mood [Unknown]
  - Feeling of despair [Unknown]

NARRATIVE: CASE EVENT DATE: 20040101
